FAERS Safety Report 11239109 (Version 3)
Quarter: 2015Q3

REPORT INFORMATION
  Report Type: Spontaneous
  Country: US (occurrence: US)
  Receive Date: 20150706
  Receipt Date: 20150817
  Transmission Date: 20151125
  Serious: No
  Sender: FDA-Public Use
  Company Number: US-AMGEN-USASP2015064272

PATIENT
  Age: 62 Year
  Sex: Male
  Weight: 106 kg

DRUGS (26)
  1. ENBREL [Suspect]
     Active Substance: ETANERCEPT
     Indication: RHEUMATOID ARTHRITIS
     Dosage: 50 MG, QWK
     Route: 058
     Dates: start: 20140723
  2. HYDROCHLOROTHIAZIDE. [Concomitant]
     Active Substance: HYDROCHLOROTHIAZIDE
     Dosage: 25 MG ORAL TABLET: 1 TAB(S) ORAL DAILY
     Route: 048
  3. METHOTREXATE [Concomitant]
     Active Substance: METHOTREXATE
     Dosage: 2.6 MG ORAL TABLET:4-5 TAB(S) ORAL EVERY WEDNESDAY
     Route: 048
  4. POTASSIUM CHLORIDE. [Concomitant]
     Active Substance: POTASSIUM CHLORIDE
     Dosage: 20 MEQ ORAL TABLET, EXTENDED RELEASE: I TAB(S) ORAL DAILY
     Route: 048
  5. VITAMIN B12 [Concomitant]
     Active Substance: CYANOCOBALAMIN
     Dosage: UNK
  6. ALBUTEROL                          /00139501/ [Concomitant]
     Active Substance: ALBUTEROL
     Indication: COUGH
  7. CIALIS [Concomitant]
     Active Substance: TADALAFIL
     Indication: ERECTILE DYSFUNCTION
     Dosage: 1 TAB(S) PO THREE TIMES WEEKLY PRN
     Route: 048
  8. LOSARTAN. [Concomitant]
     Active Substance: LOSARTAN
     Dosage: 25 MG ORAL TABLET: 1 TAB(S) ORAL DAILY
     Route: 048
  9. MOBIC [Concomitant]
     Active Substance: MELOXICAM
     Dosage: 7.5 MG ORAL TABLET (MELOXICAM): 2 TAB(S) ORAL DALLY FOR 90 DAY(S)
     Route: 048
  10. OMEPRAZOLE. [Concomitant]
     Active Substance: OMEPRAZOLE
     Dosage: 20 MG ORAL DELAYED RELEASE CAPSULE: 1 CAP(S) ORAL TWICE DAILY
     Route: 048
  11. FLUTICASONE [Concomitant]
     Active Substance: FLUTICASONE\FLUTICASONE PROPIONATE
     Dosage: 2 PUFF(S) INHALATION TWICE DAILY
  12. FOLIC ACID. [Concomitant]
     Active Substance: FOLIC ACID
     Dosage: 1 MG ORAL TABLET: I TAB(S) ORAL DAILY
     Route: 048
  13. HUMIRA [Concomitant]
     Active Substance: ADALIMUMAB
     Dosage: ONE INJECTION SQ EVERY OTHER WEEK
     Route: 058
  14. MAGNESIUM [Concomitant]
     Active Substance: MAGNESIUM
     Dosage: UNK
  15. VITAMIN C [Concomitant]
     Active Substance: ASCORBIC ACID
     Dosage: 1000 MG ORAL TABLET (ASCORBIC ACID): 1 TAB(S) ORAL DAILY
     Route: 048
  16. VITAMIN D                          /00107901/ [Concomitant]
     Active Substance: ERGOCALCIFEROL
     Dosage: UNK
  17. ALBUTEROL                          /00139501/ [Concomitant]
     Active Substance: ALBUTEROL
     Indication: WHEEZING
     Dosage: 2 PUFF(S) ORAL INHALATION FOUR TIMES DAILY
     Route: 048
  18. ATORVASTATIN [Concomitant]
     Active Substance: ATORVASTATIN
     Dosage: 80 MG ORAL TABLET: 1 TAB(S) ORAL DAILY
     Route: 048
  19. QVAR [Concomitant]
     Active Substance: BECLOMETHASONE DIPROPIONATE
     Dosage: 2 PUFFS ORAL INHALATION TWICE DAILY
     Route: 048
  20. AMOXICILLIN. [Concomitant]
     Active Substance: AMOXICILLIN
     Dosage: 4 TAB(S) PO ONE HOUR BEFORE EVERY DENTAL APPOINTMENT.
     Route: 048
  21. METHOTREXATE [Concomitant]
     Active Substance: METHOTREXATE
     Dosage: 2.5 MG ORAL TABLET: 6 TAB(S) ORAL EVERY WEDNESDAY FOR 90 DAYS
     Route: 048
  22. CYANOCOBALAMIN. [Concomitant]
     Active Substance: CYANOCOBALAMIN
     Dosage: 1000 MCG ORAL TABLET: I TAB(S) ORAL DAILY
     Route: 048
  23. VITAMIN D3 [Concomitant]
     Active Substance: CHOLECALCIFEROL
     Dosage: 2,000 INTL-UNIT(S) ORAL DAILY
     Route: 048
  24. ZOLPIDEM [Concomitant]
     Active Substance: ZOLPIDEM\ZOLPIDEM TARTRATE
     Indication: INSOMNIA
     Dosage: 10 MG ORAL TABLET: I TAB(S) ORAL EVERY BEDTIME AS NEEDED
     Route: 048
  25. CODEINE W/GUAIFENESIN              /00693301/ [Concomitant]
     Active Substance: CODEINE\GUAIFENESIN
     Indication: COUGH
     Dosage: 10 MG-100 MG/5 ML ORAL SYRUP:5 ML ORAL EVERY 4 HOURS AS NEEDED
     Route: 048
  26. ALEVE [Concomitant]
     Active Substance: NAPROXEN SODIUM
     Indication: PAIN
     Dosage: 440MG ORAL TWICE DAILY AS NEEDED
     Route: 048

REACTIONS (1)
  - Drug effect decreased [Unknown]
